FAERS Safety Report 25540990 (Version 1)
Quarter: 2025Q3

REPORT INFORMATION
  Report Type: Spontaneous
  Country: US (occurrence: None)
  Receive Date: 20250710
  Receipt Date: 20250710
  Transmission Date: 20251021
  Serious: Yes (Hospitalization)
  Sender: FDA-CTU
  Company Number: None

PATIENT
  Age: 76 Year
  Sex: Male
  Weight: 120.2 kg

DRUGS (14)
  1. NOVOLOG [Suspect]
     Active Substance: INSULIN ASPART
  2. ALBUTEROL SULFATE [Concomitant]
     Active Substance: ALBUTEROL SULFATE
  3. BACLOFEN [Concomitant]
     Active Substance: BACLOFEN
  4. BABY ASPIRIN 81MG [Concomitant]
  5. CARVEDILOL [Concomitant]
     Active Substance: CARVEDILOL
  6. CLONAZEPAM [Concomitant]
     Active Substance: CLONAZEPAM
  7. FARXIGA [Concomitant]
     Active Substance: DAPAGLIFLOZIN PROPANEDIOL
  8. FUROSEMIDE [Concomitant]
     Active Substance: FUROSEMIDE
  9. NOVOLOG [Concomitant]
     Active Substance: INSULIN ASPART
  10. KERENDIA [Concomitant]
     Active Substance: FINERENONE
  11. ROSUVASTATIN [Suspect]
     Active Substance: ROSUVASTATIN
  12. TRELEGY ELLIPTA [Concomitant]
     Active Substance: FLUTICASONE FUROATE\UMECLIDINIUM BROMIDE\VILANTEROL TRIFENATATE
  13. VITAMIN C [Concomitant]
     Active Substance: ASCORBIC ACID
  14. VITAMIN D [Concomitant]
     Active Substance: VITAMIN D NOS

REACTIONS (6)
  - Blood glucose decreased [None]
  - Device information output issue [None]
  - Device infusion issue [None]
  - Device defective [None]
  - Dose calculation error [None]
  - Incorrect dose administered by device [None]

NARRATIVE: CASE EVENT DATE: 20250701
